FAERS Safety Report 6379517-9 (Version None)
Quarter: 2009Q3

REPORT INFORMATION
  Report Type: 
  Country: None (occurrence: None)
  Receive Date: 20090928
  Receipt Date: 20090923
  Transmission Date: 20100115
  Serious: Yes (Death)
  Sender: FDA-Public Use
  Company Number: US-GENENTECH-291020

PATIENT
  Sex: Female

DRUGS (2)
  1. HERCEPTIN [Suspect]
     Indication: DRUG USE FOR UNKNOWN INDICATION
     Dosage: UNK
  2. ANTIBIOTICS (NOT SPECIFIED) [Concomitant]
     Indication: INFECTION
     Dosage: UNK

REACTIONS (1)
  - SUDDEN DEATH [None]
